FAERS Safety Report 13735602 (Version 1)
Quarter: 2017Q3

REPORT INFORMATION
  Report Type: Spontaneous
  Country: US (occurrence: US)
  Receive Date: 20170708
  Receipt Date: 20170708
  Transmission Date: 20171127
  Serious: Yes (Disabling)
  Sender: FDA-Public Use
  Company Number: None

PATIENT
  Age: 24 Year
  Sex: Female
  Weight: 82.8 kg

DRUGS (7)
  1. LAMICTAL [Concomitant]
     Active Substance: LAMOTRIGINE
  2. OMEGA 3 FISH OIL [Concomitant]
     Active Substance: FISH OIL\OMEGA-3 FATTY ACIDS
  3. NEURONTIN [Concomitant]
     Active Substance: GABAPENTIN
  4. LATUDA [Suspect]
     Active Substance: LURASIDONE HYDROCHLORIDE
     Indication: SCHIZOAFFECTIVE DISORDER BIPOLAR TYPE
     Dosage: ?          OTHER STRENGTH:MG/MG;?
     Route: 048
  5. CINNAMON. [Concomitant]
     Active Substance: CINNAMON
  6. FIBER [Concomitant]
     Active Substance: PSYLLIUM HUSK
  7. ONE A DAY WOMEN^S [Concomitant]
     Active Substance: MINERALS\VITAMINS

REACTIONS (3)
  - Reduced facial expression [None]
  - Therapy change [None]
  - Depression [None]

NARRATIVE: CASE EVENT DATE: 20160901
